FAERS Safety Report 15345421 (Version 3)
Quarter: 2018Q3

REPORT INFORMATION
  Report Type: Report from Study
  Country: BE (occurrence: BE)
  Receive Date: 20180903
  Receipt Date: 20180911
  Transmission Date: 20181010
  Serious: Yes (Hospitalization, Other)
  Sender: FDA-Public Use
  Company Number: BE-BEH-2018094444

PATIENT
  Sex: Female

DRUGS (1)
  1. HIZENTRA [Suspect]
     Active Substance: HUMAN IMMUNOGLOBULIN G
     Indication: PRODUCT USED FOR UNKNOWN INDICATION
     Dosage: 6 G, QW
     Route: 058
     Dates: start: 20180102

REACTIONS (4)
  - Bone cancer [Unknown]
  - Weight increased [Unknown]
  - Asthma [Unknown]
  - Asthma [Unknown]

NARRATIVE: CASE EVENT DATE: 20180508
